FAERS Safety Report 26135265 (Version 1)
Quarter: 2025Q4

REPORT INFORMATION
  Report Type: Spontaneous
  Country: CN (occurrence: CN)
  Receive Date: 20251209
  Receipt Date: 20251209
  Transmission Date: 20260118
  Serious: Yes (Life-Threatening, Hospitalization, Other)
  Sender: BAYER HEALTHCARE PHARMACEUTICALS INC.
  Company Number: CN-BAYER-2025A161364

PATIENT
  Age: 74 Year
  Sex: Female
  Weight: 71 kg

DRUGS (2)
  1. ULTRAVIST [Suspect]
     Active Substance: IOPROMIDE
     Indication: Computerised tomogram
     Dosage: 75 ML, ONCE, VIA HIGH-PRESSURE INJECTION AT A RATE OF 2.3ML/S
     Route: 042
     Dates: start: 20251203, end: 20251203
  2. ULTRAVIST [Suspect]
     Active Substance: IOPROMIDE
     Indication: Pulmonary mass

REACTIONS (6)
  - Anaphylactic shock [Recovered/Resolved]
  - Dizziness [Recovered/Resolved]
  - Loss of consciousness [Recovered/Resolved]
  - Heart rate increased [Recovered/Resolved]
  - Oxygen saturation decreased [Recovered/Resolved]
  - Blood pressure immeasurable [Recovered/Resolved]

NARRATIVE: CASE EVENT DATE: 20251203
